FAERS Safety Report 10163121 (Version 5)
Quarter: 2022Q3

REPORT INFORMATION
  Report Type: Spontaneous
  Country: US (occurrence: US)
  Receive Date: 20140509
  Receipt Date: 20220821
  Transmission Date: 20221027
  Serious: Yes (Hospitalization, Other)
  Sender: FDA-Public Use
  Company Number: US-GLAXOSMITHKLINE-A1071556A

PATIENT
  Age: 77 Year
  Sex: Female

DRUGS (2)
  1. ADVAIR HFA [Suspect]
     Active Substance: FLUTICASONE PROPIONATE\SALMETEROL XINAFOATE
     Indication: Asthma
     Dosage: 100/50 MCG
     Route: 055
     Dates: start: 20040108
  2. UNSPECIFIED INGREDIENT [Concomitant]
     Active Substance: UNSPECIFIED INGREDIENT

REACTIONS (4)
  - Cardiac operation [Recovered/Resolved]
  - Arterial therapeutic procedure [Recovered/Resolved]
  - Aortic valve replacement [Recovered/Resolved]
  - Phlebectomy [Recovered/Resolved]

NARRATIVE: CASE EVENT DATE: 20130903
